FAERS Safety Report 9171069 (Version 1)
Quarter: 2013Q1

REPORT INFORMATION
  Report Type: Spontaneous
  Country: US (occurrence: US)
  Receive Date: 20130319
  Receipt Date: 20130319
  Transmission Date: 20140127
  Serious: Yes (Other)
  Sender: FDA-Public Use
  Company Number: PHEH2013US006204

PATIENT
  Sex: Female

DRUGS (6)
  1. TEKTURNA [Suspect]
     Dosage: 300 MG, UNK
     Route: 048
  2. TEKTURNA [Suspect]
     Dosage: 150 MG, UNK
  3. NORVASC [Concomitant]
  4. METOPROLOL [Concomitant]
  5. COLESTIPOL [Concomitant]
  6. NEURONTIN [Concomitant]

REACTIONS (3)
  - Crohn^s disease [Unknown]
  - Pain in extremity [Unknown]
  - Hypotension [Unknown]
